FAERS Safety Report 13054579 (Version 2)
Quarter: 2017Q1

REPORT INFORMATION
  Report Type: Spontaneous
  Country: US (occurrence: US)
  Receive Date: 20161222
  Receipt Date: 20170110
  Transmission Date: 20170428
  Serious: Yes (Other)
  Sender: FDA-Public Use
  Company Number: US-PFIZER INC-2016105824

PATIENT
  Age: 75 Year
  Sex: Female
  Weight: 72.56 kg

DRUGS (41)
  1. CORTEF [Interacting]
     Active Substance: HYDROCORTISONE
     Dosage: 50 MG, UNK (DOUBLE DOSE X3 DAYS)
  2. COLACE [Concomitant]
     Active Substance: DOCUSATE SODIUM
     Dosage: 50 MG, 2X/DAY
  3. CRANBERRY. [Concomitant]
     Active Substance: CRANBERRY
     Dosage: UNK
  4. STOOL SOFTENER (DOCUSATE CALCIUM) [Concomitant]
     Active Substance: DOCUSATE CALCIUM
     Dosage: UNK
  5. VITAMIN E [Concomitant]
     Active Substance: .ALPHA.-TOCOPHEROL
     Dosage: 400 MG, UNK
  6. TYLENOL [Concomitant]
     Active Substance: ACETAMINOPHEN
     Dosage: 500 MG, UNK
  7. VITAMIN B12 [Concomitant]
     Active Substance: CYANOCOBALAMIN
     Dosage: 2500 UG, UNK
  8. LEVOFLOXACIN. [Concomitant]
     Active Substance: LEVOFLOXACIN
     Dosage: 250 MG, 1X/DAY
  9. BIOTENE ORAL BALANCE [Concomitant]
     Active Substance: DEVICE\XYLITOL
     Dosage: UNK
  10. CETAPHIL [Concomitant]
     Active Substance: AVOBENZONE\OCTOCRYLENE\TRICLOSAN
     Dosage: UNK
  11. CORTEF [Interacting]
     Active Substance: HYDROCORTISONE
     Dosage: 20 MG, UNK (20MG AT A TIME)
  12. VITAMIN B12 [Concomitant]
     Active Substance: CYANOCOBALAMIN
     Dosage: 1000 UG, UNK
  13. ALPHA-ETHYLTRYPTAMINE [Concomitant]
     Dosage: 400 IU, UNK
  14. KAOPECTATE REGULAR STRENGTH CHERRY FLAVOR [Concomitant]
     Active Substance: BISMUTH SUBSALICYLATE
     Dosage: UNK
  15. MILK OF MAGNESIA [Concomitant]
     Active Substance: MAGNESIUM HYDROXIDE
     Dosage: UNK
  16. CORTEF [Interacting]
     Active Substance: HYDROCORTISONE
     Dosage: 50 MG, DAILY (7AM-3PM (5MG PER HOUR),8PM(5 MG)
  17. SYNTHROID [Concomitant]
     Active Substance: LEVOTHYROXINE SODIUM
     Dosage: 50 UG, UNK
  18. VITAMIN B6 [Concomitant]
     Active Substance: PYRIDOXINE HYDROCHLORIDE
     Dosage: 100 MG, UNK
  19. LEVOTHYROXINE. [Concomitant]
     Active Substance: LEVOTHYROXINE
     Indication: THYROID DISORDER
     Dosage: 50 UG, 2X/DAY (50MCG AT 6AM AND 50MCG AT 8PM)
     Dates: start: 2000
  20. VITAMIN K [Concomitant]
     Active Substance: PHYTONADIONE
     Dosage: 100 UG, UNK
  21. IMODIUM A-D [Concomitant]
     Active Substance: LOPERAMIDE HYDROCHLORIDE
     Dosage: 2 MG, UNK
  22. PERCOCET [Concomitant]
     Active Substance: ACETAMINOPHEN\OXYCODONE HYDROCHLORIDE
     Indication: SLEEP DISORDER
  23. VITAMIN C [Concomitant]
     Active Substance: ASCORBIC ACID
     Dosage: 250 MG, UNK
  24. CORTEF [Suspect]
     Active Substance: HYDROCORTISONE
     Indication: ADDISON^S DISEASE
     Dosage: UNK
     Dates: start: 2007
  25. HERCEPTIN [Interacting]
     Active Substance: TRASTUZUMAB
     Dosage: UNK
  26. PEPCID [Concomitant]
     Active Substance: FAMOTIDINE
     Dosage: 20 MG, UNK
  27. ZOFRAN [Concomitant]
     Active Substance: ONDANSETRON HYDROCHLORIDE
     Dosage: 4 MG, UNK
  28. ZOFRAN [Concomitant]
     Active Substance: ONDANSETRON HYDROCHLORIDE
     Dosage: 4 MG, 2X/DAY
  29. PERCOCET [Concomitant]
     Active Substance: ACETAMINOPHEN\OXYCODONE HYDROCHLORIDE
     Indication: PAIN
     Dosage: UNK (OXYCODONE 5MG/ACETAMINOPHEN 325MG)
     Dates: start: 2000
  30. FASLODEX [Concomitant]
     Active Substance: FULVESTRANT
     Dosage: 250 ML, UNK
  31. ASPIRIN. [Concomitant]
     Active Substance: ASPIRIN
     Dosage: 81 MG, DAILY
  32. AVEENO BATH [Concomitant]
     Dosage: UNK
  33. VITAMIN D [Concomitant]
     Active Substance: CHOLECALCIFEROL
     Dosage: UNK(4000-5000 IU)
  34. CORTEF [Interacting]
     Active Substance: HYDROCORTISONE
     Dosage: AT 7AM 5MG TABLET EVERY HOUR UNTIL 3PM, 5MG AT 8PM
     Route: 048
     Dates: start: 201601
  35. ECOTRIN [Concomitant]
     Active Substance: ASPIRIN
     Dosage: 81 MG, UNK
  36. VITAMIN D2 [Concomitant]
     Active Substance: ERGOCALCIFEROL
     Dosage: UNK
     Route: 048
  37. TERAZOL 3 [Concomitant]
     Active Substance: TERCONAZOLE
     Dosage: 80 MG, UNK
  38. FASLODEX [Concomitant]
     Active Substance: FULVESTRANT
     Dosage: 500 MG, UNK
     Dates: start: 201404
  39. ACIDOPHILUS [Concomitant]
     Active Substance: LACTOBACILLUS ACIDOPHILUS
     Dosage: UNK
  40. SALINEX [Concomitant]
     Dosage: UNK
  41. ONDANSETRON HCL [Concomitant]
     Active Substance: ONDANSETRON HYDROCHLORIDE
     Indication: GASTRIC DISORDER
     Dosage: 4 MG, 2X/DAY
     Dates: start: 2000

REACTIONS (6)
  - Nasopharyngitis [Not Recovered/Not Resolved]
  - Solar lentigo [Unknown]
  - Drug interaction [Unknown]
  - Abdominal discomfort [Unknown]
  - Breast cancer stage III [Unknown]
  - Fluid retention [Not Recovered/Not Resolved]
